FAERS Safety Report 15385120 (Version 1)
Quarter: 2018Q3

REPORT INFORMATION
  Report Type: Spontaneous
  Country: US (occurrence: US)
  Receive Date: 20180907
  Receipt Date: 20180907
  Transmission Date: 20181010
  Serious: Yes (Disabling)
  Sender: FDA-Public Use
  Company Number: None

PATIENT
  Age: 51 Year
  Sex: Female
  Weight: 94.05 kg

DRUGS (5)
  1. ESCITALOPRAM OXALATE. [Suspect]
     Active Substance: ESCITALOPRAM OXALATE
     Indication: ANXIETY
     Dosage: ?          QUANTITY:30 TABLET(S);?
     Route: 048
     Dates: start: 20180714, end: 20180812
  2. CALCIUM [Concomitant]
     Active Substance: CALCIUM
  3. DOTERRA ESSENTIAL OILS [Concomitant]
  4. WATERPILL [Concomitant]
  5. MAGNESIUM [Concomitant]
     Active Substance: MAGNESIUM

REACTIONS (2)
  - Neuropathy peripheral [None]
  - Oedema peripheral [None]

NARRATIVE: CASE EVENT DATE: 20180723
